FAERS Safety Report 8577345-7 (Version None)
Quarter: 2012Q3

REPORT INFORMATION
  Report Type: 
  Country: None (occurrence: None)
  Receive Date: 20120807
  Receipt Date: 20120712
  Transmission Date: 20120928
  Serious: Yes (Other)
  Sender: FDA-Public Use
  Company Number: CHPA2012US015456

PATIENT
  Age: 51 Year
  Sex: Female

DRUGS (6)
  1. TOPAMAX [Suspect]
     Indication: PROPHYLAXIS
     Dosage: UNK, UNK
     Dates: start: 20030101
  2. ZOLOFT [Concomitant]
     Indication: DEPRESSION
     Dosage: UNK
     Dates: start: 20110101
  3. EXCEDRIN (MIGRAINE) [Suspect]
     Indication: MIGRAINE
     Dosage: 2 CAPLETS Q 4 - 6 HRS PRN
     Route: 048
  4. DRUG THERAPY NOS [Concomitant]
     Indication: INSOMNIA
  5. DRUG THERAPY NOS [Concomitant]
     Indication: MIGRAINE
     Dosage: UNK
     Dates: start: 20120201
  6. TYLENOL [Concomitant]
     Indication: MIGRAINE
     Dosage: UNK
     Dates: start: 20120101

REACTIONS (2)
  - OVERDOSE [None]
  - DISEASE RECURRENCE [None]
